FAERS Safety Report 14671620 (Version 1)
Quarter: 2018Q1

REPORT INFORMATION
  Report Type: Report from Study
  Country: None (occurrence: IE)
  Receive Date: 20180323
  Receipt Date: 20180323
  Transmission Date: 20180509
  Serious: Yes (Hospitalization)
  Sender: FDA-Public Use
  Company Number: IE-ABBVIE-18K-229-2295539-00

PATIENT
  Sex: Female

DRUGS (1)
  1. HUMIRA [Suspect]
     Active Substance: ADALIMUMAB
     Indication: RHEUMATOID ARTHRITIS
     Route: 058
     Dates: end: 201612

REACTIONS (7)
  - Infection [Unknown]
  - Lower limb fracture [Unknown]
  - Immune system disorder [Unknown]
  - Fracture malunion [Unknown]
  - Upper limb fracture [Unknown]
  - Hand fracture [Unknown]
  - Road traffic accident [Unknown]

NARRATIVE: CASE EVENT DATE: 2016
